FAERS Safety Report 15705610 (Version 1)
Quarter: 2018Q4

REPORT INFORMATION
  Report Type: Spontaneous
  Country: US (occurrence: US)
  Receive Date: 20181210
  Receipt Date: 20181210
  Transmission Date: 20190205
  Serious: No
  Sender: FDA-Public Use
  Company Number: None

PATIENT
  Age: 70 Year
  Sex: Female
  Weight: 58.5 kg

DRUGS (11)
  1. CALCIUM [Concomitant]
     Active Substance: CALCIUM
  2. VITAMIN D3 [Concomitant]
     Active Substance: CHOLECALCIFEROL
  3. RESTASIS [Suspect]
     Active Substance: CYCLOSPORINE
     Indication: DRY EYE
     Dosage: ?          QUANTITY:1 DROP(S);?
     Route: 047
     Dates: start: 20180301, end: 20181210
  4. MULTI VITAMIN [Concomitant]
     Active Substance: VITAMINS
  5. FISH OIL [Concomitant]
     Active Substance: FISH OIL
  6. IODINE. [Concomitant]
     Active Substance: IODINE
  7. PRE BIOTICS [Concomitant]
  8. CURCUMIN [Concomitant]
     Active Substance: CURCUMIN
  9. UBIQUINOL [Concomitant]
     Active Substance: UBIQUINOL
  10. PROBIOTICS [Concomitant]
     Active Substance: PROBIOTICS NOS
  11. ASTAXANTHIN [Concomitant]

REACTIONS (8)
  - Sinus congestion [None]
  - Sinus pain [None]
  - Headache [None]
  - Arthralgia [None]
  - Ocular hyperaemia [None]
  - Asthenia [None]
  - Chronic sinusitis [None]
  - Eye irritation [None]

NARRATIVE: CASE EVENT DATE: 20180301
